FAERS Safety Report 15479820 (Version 1)
Quarter: 2018Q4

REPORT INFORMATION
  Report Type: Spontaneous
  Country: US (occurrence: US)
  Receive Date: 20181009
  Receipt Date: 20181009
  Transmission Date: 20190205
  Serious: Yes (Other)
  Sender: FDA-Public Use
  Company Number: US-PFIZER INC-2018399122

PATIENT
  Age: 57 Year
  Sex: Male
  Weight: 108.86 kg

DRUGS (5)
  1. TRAMADOL. [Suspect]
     Active Substance: TRAMADOL
     Indication: PAIN
     Dosage: 50 MG, AS NEEDED (EVERY 6 HOURS)
     Route: 048
     Dates: start: 20180925
  2. LYRICA [Suspect]
     Active Substance: PREGABALIN
     Indication: HERPES ZOSTER
     Dosage: UNK UNK, 3X/DAY (ONE TO TWO CAPSULES BY MOUTH THREE TIMES DAILY)
     Route: 048
     Dates: start: 20180924, end: 20180926
  3. LYRICA [Suspect]
     Active Substance: PREGABALIN
     Indication: PAIN
  4. TRAMADOL. [Suspect]
     Active Substance: TRAMADOL
     Indication: HERPES ZOSTER
  5. VALACYCLOVIR HCL [Suspect]
     Active Substance: VALACYCLOVIR HYDROCHLORIDE
     Indication: HERPES ZOSTER
     Dosage: 1 G, 3X/DAY (ONE GRAM, WHAT HE CALLS A HORSE PILL, BY MOUTH THREE TIMES DAILY)
     Route: 048
     Dates: start: 20180918

REACTIONS (8)
  - Swollen tongue [Recovered/Resolved]
  - Speech disorder [Recovering/Resolving]
  - Delirium [Recovered/Resolved]
  - Swelling face [Recovered/Resolved]
  - Glossodynia [Recovering/Resolving]
  - Tongue biting [Recovered/Resolved]
  - Swelling [Recovered/Resolved]
  - Drug hypersensitivity [Not Recovered/Not Resolved]

NARRATIVE: CASE EVENT DATE: 20180924
